FAERS Safety Report 25190195 (Version 1)
Quarter: 2025Q2

REPORT INFORMATION
  Report Type: Spontaneous
  Country: IL (occurrence: IL)
  Receive Date: 20250411
  Receipt Date: 20250411
  Transmission Date: 20250716
  Serious: Yes (Death)
  Sender: GILEAD
  Company Number: IL-GILEAD-2025-0710038

PATIENT
  Age: 54 Year
  Sex: Male

DRUGS (1)
  1. TECARTUS [Suspect]
     Active Substance: BREXUCABTAGENE AUTOLEUCEL
     Indication: Product used for unknown indication
     Route: 065

REACTIONS (1)
  - COVID-19 [Fatal]
